FAERS Safety Report 6673919-9 (Version None)
Quarter: 2010Q2

REPORT INFORMATION
  Report Type: 
  Country: None (occurrence: None)
  Receive Date: 20100409
  Receipt Date: 20100303
  Transmission Date: 20101027
  Serious: No
  Sender: FDA-Public Use
  Company Number: US-BIOGENIDEC-2010BI007465

PATIENT
  Age: 63 Year
  Sex: Female

DRUGS (10)
  1. TYSABRI [Suspect]
     Indication: CROHN'S DISEASE
     Route: 042
     Dates: start: 20090318
  2. TYLENOL-500 [Concomitant]
     Route: 048
  3. VITAMINE E [Concomitant]
  4. MAGNESIUM [Concomitant]
     Route: 048
  5. IRON [Concomitant]
  6. RECLAST [Concomitant]
  7. RED YEAST RICE [Concomitant]
  8. CALCIUM [Concomitant]
  9. MULTI-VITAMIN [Concomitant]
  10. NUX VOMICA [Concomitant]

REACTIONS (4)
  - ABDOMINAL PAIN UPPER [None]
  - ARTHRALGIA [None]
  - HYPERSENSITIVITY [None]
  - INTESTINAL FISTULA [None]
